FAERS Safety Report 8140106-7 (Version None)
Quarter: 2012Q1

REPORT INFORMATION
  Report Type: 
  Country: None (occurrence: None)
  Receive Date: 20120216
  Receipt Date: 20120201
  Transmission Date: 20120608
  Serious: Yes (Other)
  Sender: FDA-Public Use
  Company Number: SE-AMGEN-US288296

PATIENT
  Age: 56 Year
  Sex: Male

DRUGS (4)
  1. METHOTREXATE [Concomitant]
     Dosage: UNK
     Dates: start: 20040101
  2. ETANERCEPT [Suspect]
     Indication: RHEUMATOID ARTHRITIS
  3. ETANERCEPT [Suspect]
     Indication: PSORIATIC ARTHROPATHY
     Dosage: DOSE UNKNOWN
     Dates: start: 20040611
  4. ETANERCEPT [Suspect]
     Indication: ANKYLOSING SPONDYLITIS

REACTIONS (1)
  - PROSTATE CANCER [None]
